FAERS Safety Report 9248137 (Version 1)
Quarter: 2013Q2

REPORT INFORMATION
  Report Type: Spontaneous
  Country: US (occurrence: US)
  Receive Date: 20130423
  Receipt Date: 20130423
  Transmission Date: 20140414
  Serious: No
  Sender: FDA-Public Use
  Company Number: US-PFIZER INC-2013124639

PATIENT
  Sex: Male

DRUGS (1)
  1. ZARONTIN [Suspect]
     Dosage: UNK

REACTIONS (1)
  - Eye irritation [Unknown]
